FAERS Safety Report 4339422-6 (Version None)
Quarter: 2004Q2

REPORT INFORMATION
  Report Type: 
  Country: None (occurrence: None)
  Receive Date: 20040412
  Receipt Date: 20040401
  Transmission Date: 20050107
  Serious: Yes (Hospitalization)
  Sender: FDA-Public Use
  Company Number: IT-JNJFOC-20040305780

PATIENT
  Age: 50 Year
  Sex: Female

DRUGS (5)
  1. REMICADE [Suspect]
     Indication: RHEUMATOID ARTHRITIS
     Dosage: 3 MG/KG, INTRAVENOUS
     Route: 042
     Dates: start: 20040316
  2. LASIX [Concomitant]
  3. URBASON (METHYLPREDNISOLONE) [Concomitant]
  4. SYNFLEX (NAPROXEN SODIUM) [Concomitant]
  5. TIROIDE AMSA (NOVOTHYRAL) [Concomitant]

REACTIONS (4)
  - CHILLS [None]
  - INFUSION RELATED REACTION [None]
  - NAUSEA [None]
  - PYREXIA [None]
